FAERS Safety Report 13763490 (Version 1)
Quarter: 2017Q3

REPORT INFORMATION
  Report Type: Spontaneous
  Country: US (occurrence: US)
  Receive Date: 20170718
  Receipt Date: 20170718
  Transmission Date: 20171127
  Serious: Yes (Hospitalization)
  Sender: FDA-Public Use
  Company Number: US-GLAXOSMITHKLINE-US2017GSK110359

PATIENT
  Age: 30 Year
  Sex: Male

DRUGS (1)
  1. LAMICTAL XR [Suspect]
     Active Substance: LAMOTRIGINE
     Indication: SEIZURE
     Dosage: UNK
     Dates: start: 2013

REACTIONS (4)
  - Dehydration [Unknown]
  - Medical observation [Unknown]
  - Feeling abnormal [Unknown]
  - Emergency care [Unknown]

NARRATIVE: CASE EVENT DATE: 20170712
